FAERS Safety Report 14171090 (Version 2)
Quarter: 2017Q4

REPORT INFORMATION
  Report Type: Spontaneous
  Country: AT (occurrence: AT)
  Receive Date: 20171108
  Receipt Date: 20171129
  Transmission Date: 20180321
  Serious: Yes (Death, Hospitalization, Other)
  Sender: FDA-Public Use
  Company Number: AT-ELI_LILLY_AND_COMPANY-AT201711001372

PATIENT
  Sex: Male

DRUGS (8)
  1. DIPHENHYDRAMINE. [Concomitant]
     Active Substance: DIPHENHYDRAMINE
  2. TAXOTERE [Suspect]
     Active Substance: DOCETAXEL
     Indication: SQUAMOUS CELL CARCINOMA OF LUNG
     Dosage: UNK UNK, CYCLICAL (EVERY 21 DAYS)
     Route: 065
     Dates: start: 20171012
  3. CYRAMZA [Suspect]
     Active Substance: RAMUCIRUMAB
     Indication: METASTASES TO LIVER
  4. TAXOTERE [Suspect]
     Active Substance: DOCETAXEL
     Indication: METASTASES TO LIVER
  5. NEULASTA [Concomitant]
     Active Substance: PEGFILGRASTIM
  6. CYRAMZA [Suspect]
     Active Substance: RAMUCIRUMAB
     Indication: SQUAMOUS CELL CARCINOMA OF LUNG
     Dosage: UNK UNK, CYCLICAL (EVERY 21 DAYS)
     Route: 065
     Dates: start: 20171012
  7. DEXAMETHASONE. [Concomitant]
     Active Substance: DEXAMETHASONE
  8. ONDANSETROM                        /00955301/ [Concomitant]
     Active Substance: ONDANSETRON

REACTIONS (24)
  - Blood chloride decreased [Unknown]
  - Blood glucose increased [Unknown]
  - Cerebral haemorrhage [Fatal]
  - Neutrophil count increased [Unknown]
  - Blood thromboplastin decreased [Unknown]
  - N-terminal prohormone brain natriuretic peptide increased [Unknown]
  - Blood lactate dehydrogenase increased [Unknown]
  - Myelocyte count increased [Unknown]
  - Troponin T increased [Unknown]
  - Atrial fibrillation [Unknown]
  - Protein total decreased [Unknown]
  - Apraxia [Unknown]
  - Blood potassium decreased [Unknown]
  - Blood calcium decreased [Unknown]
  - Neoplasm progression [Fatal]
  - Blood sodium decreased [Unknown]
  - Gamma-glutamyltransferase increased [Unknown]
  - Hemiplegia [Unknown]
  - Myoglobin blood increased [Unknown]
  - Blood cholinesterase decreased [Unknown]
  - Somnolence [Unknown]
  - Aphasia [Unknown]
  - Monocyte count decreased [Unknown]
  - Platelet count decreased [Unknown]

NARRATIVE: CASE EVENT DATE: 20171021
